FAERS Safety Report 9929190 (Version 1)
Quarter: 2014Q1

REPORT INFORMATION
  Report Type: Spontaneous
  Country: US (occurrence: None)
  Receive Date: 20140225
  Receipt Date: 20140225
  Transmission Date: 20141002
  Serious: Yes (Hospitalization)
  Sender: FDA-Public Use
  Company Number: SYM-2014-17794

PATIENT
  Age: 36 Year
  Sex: Female

DRUGS (1)
  1. XENAZINE (12.5 MILLIGRAM, TABLET) (TETRABENAZINE) [Suspect]
     Indication: HUNTINGTON^S DISEASE
     Dosage: 12.5 MG, 2 IN 1 D, ORAL
     Route: 048
     Dates: start: 20110413

REACTIONS (1)
  - Abscess [None]
